FAERS Safety Report 9801392 (Version 2)
Quarter: 2014Q1

REPORT INFORMATION
  Report Type: Spontaneous
  Country: US (occurrence: US)
  Receive Date: 20140107
  Receipt Date: 20140321
  Transmission Date: 20141002
  Serious: Yes (Death, Other)
  Sender: FDA-Public Use
  Company Number: US-GILEAD-2014-0091421

PATIENT
  Age: 76 Year
  Sex: Female

DRUGS (16)
  1. LETAIRIS [Suspect]
     Indication: PULMONARY ARTERIAL HYPERTENSION
     Dosage: 5 MG, QD
     Route: 048
     Dates: start: 20110307
  2. VENTAVIS [Concomitant]
  3. RIOCIGUAT [Concomitant]
  4. ASPIRIN [Concomitant]
  5. BUMETANIDE [Concomitant]
  6. CARVEDILOL [Concomitant]
  7. FLUTICASONE W/SALMETEROL [Concomitant]
  8. GENERLAC [Concomitant]
  9. LEVOTHYROXINE [Concomitant]
  10. LOVASTATIN [Concomitant]
  11. OMEPRAZOLE [Concomitant]
  12. ONDANSETRON [Concomitant]
  13. POTASSIUM CHLORIDE [Concomitant]
  14. SITAGLIPTIN [Concomitant]
  15. SALINE                             /00075401/ [Concomitant]
  16. TRAMADOL [Concomitant]

REACTIONS (1)
  - Cardiac arrest [Fatal]
